FAERS Safety Report 6700592-3 (Version None)
Quarter: 2010Q2

REPORT INFORMATION
  Report Type: 
  Country: None (occurrence: None)
  Receive Date: 20100428
  Receipt Date: 20100415
  Transmission Date: 20101027
  Serious: No
  Sender: FDA-Public Use
  Company Number: US-B.I. PHARMACEUTICALS,INC./RIDGEFIELD-2010-BP-04384BP

PATIENT
  Age: 76 Year
  Sex: Female

DRUGS (2)
  1. MIRAPEX [Suspect]
     Indication: RESTLESS LEGS SYNDROME
     Route: 048
     Dates: start: 20071201, end: 20081101
  2. MIRAPEX [Suspect]
     Route: 048
     Dates: start: 20081201

REACTIONS (3)
  - AMNESIA [None]
  - DRUG EFFECT DECREASED [None]
  - FATIGUE [None]
